FAERS Safety Report 6545459-9 (Version None)
Quarter: 2010Q1

REPORT INFORMATION
  Report Type: 
  Country: None (occurrence: None)
  Receive Date: 20100119
  Receipt Date: 20100107
  Transmission Date: 20100710
  Serious: Yes (Disabling)
  Sender: FDA-Public Use
  Company Number: 1-21264344

PATIENT
  Sex: Female

DRUGS (1)
  1. METOCLOPRAMIDE [Suspect]
     Indication: GASTROOESOPHAGEAL REFLUX DISEASE
     Dosage: 40 MG PER DAY, ORAL
     Route: 048
     Dates: start: 20040801, end: 20041201

REACTIONS (6)
  - ACTIVITIES OF DAILY LIVING IMPAIRED [None]
  - EMOTIONAL DISTRESS [None]
  - OROMANDIBULAR DYSTONIA [None]
  - PAIN IN JAW [None]
  - SOMNOLENCE [None]
  - TARDIVE DYSKINESIA [None]
